FAERS Safety Report 15207477 (Version 2)
Quarter: 2018Q4

REPORT INFORMATION
  Report Type: Spontaneous
  Country: DE (occurrence: DE)
  Receive Date: 20180727
  Receipt Date: 20180806
  Transmission Date: 20190204
  Serious: Yes (Other)
  Sender: FDA-Public Use
  Company Number: DE-HIKMA PHARMACEUTICALS USA INC.-DE-H14001-18-06047

PATIENT
  Age: 20 Year
  Sex: Male

DRUGS (2)
  1. LEVETIRACETAM. [Suspect]
     Active Substance: LEVETIRACETAM
     Indication: EPILEPSY
     Dosage: THEN GRADUALLY TAPERED BY 500 MG PER DAY
     Route: 065
  2. LACOSAMIDE. [Suspect]
     Active Substance: LACOSAMIDE
     Indication: EPILEPSY
     Dosage: MAINTAINED 400MG/DAY UNTIL DAY 6 AND THEN GRADUALLY TAPERED
     Route: 065

REACTIONS (2)
  - Drug withdrawal convulsions [Recovered/Resolved]
  - Drug resistance [Unknown]
